FAERS Safety Report 11934494 (Version 1)
Quarter: 2016Q1

REPORT INFORMATION
  Report Type: Spontaneous
  Country: CO (occurrence: CO)
  Receive Date: 20160121
  Receipt Date: 20160121
  Transmission Date: 20160526
  Serious: Yes (Hospitalization, Other)
  Sender: FDA-Public Use
  Company Number: PHHY2016CO006190

PATIENT
  Age: 85 Year
  Sex: Female

DRUGS (2)
  1. AFINITOR [Suspect]
     Active Substance: EVEROLIMUS
     Indication: BREAST CANCER METASTATIC
     Dosage: 5 MG, UNK
     Route: 048
     Dates: start: 20150605, end: 20151002
  2. EXEMESTANE. [Concomitant]
     Active Substance: EXEMESTANE
     Indication: PRODUCT USED FOR UNKNOWN INDICATION
     Dosage: UNK
     Route: 065

REACTIONS (4)
  - Superinfection [Unknown]
  - Malignant neoplasm progression [Unknown]
  - Inappropriate schedule of drug administration [Unknown]
  - Wound infection [Unknown]

NARRATIVE: CASE EVENT DATE: 20150605
